FAERS Safety Report 23597459 (Version 1)
Quarter: 2024Q1

REPORT INFORMATION
  Report Type: Spontaneous
  Country: US (occurrence: None)
  Receive Date: 20240305
  Receipt Date: 20240305
  Transmission Date: 20240410
  Serious: No
  Sender: FDA-Public Use
  Company Number: None

PATIENT
  Age: 77 Year
  Sex: Female
  Weight: 51.3 kg

DRUGS (1)
  1. PROLIA [Suspect]
     Active Substance: DENOSUMAB
     Dates: start: 20220305, end: 20240305

REACTIONS (6)
  - Gingival disorder [None]
  - Loose tooth [None]
  - Rash [None]
  - Trichorrhexis [None]
  - Arthralgia [None]
  - Product communication issue [None]

NARRATIVE: CASE EVENT DATE: 20240301
